FAERS Safety Report 25092445 (Version 1)
Quarter: 2025Q1

REPORT INFORMATION
  Report Type: Report from Study
  Country: RO (occurrence: RO)
  Receive Date: 20250319
  Receipt Date: 20250319
  Transmission Date: 20250409
  Serious: Yes (Hospitalization, Other)
  Sender: RANBAXY
  Company Number: RO-SUN PHARMACEUTICAL INDUSTRIES LTD-2025R1-499307

PATIENT
  Age: 2 Week
  Sex: Male

DRUGS (2)
  1. ENOXAPARIN SODIUM [Suspect]
     Active Substance: ENOXAPARIN SODIUM
     Indication: Hypercoagulation
     Route: 065
  2. ASPIRIN [Suspect]
     Active Substance: ASPIRIN
     Indication: Hypercoagulation
     Route: 065

REACTIONS (8)
  - Foetal exposure during pregnancy [Unknown]
  - Premature baby [Unknown]
  - Hypercoagulation [Unknown]
  - Gene mutation [Unknown]
  - Myoclonic epilepsy [Unknown]
  - Haemorrhage [Unknown]
  - Generalised tonic-clonic seizure [Unknown]
  - Basal ganglia haemorrhage [Unknown]
